FAERS Safety Report 6002285-7 (Version None)
Quarter: 2008Q4

REPORT INFORMATION
  Report Type: 
  Country: None (occurrence: None)
  Receive Date: 20081215
  Receipt Date: 20071204
  Transmission Date: 20090506
  Serious: No
  Sender: FDA-Public Use
  Company Number: US-AMGEN-KDL254294

PATIENT
  Sex: Female

DRUGS (5)
  1. ENBREL [Suspect]
     Indication: ANKYLOSING SPONDYLITIS
     Dates: start: 20070910
  2. METHOTREXATE [Concomitant]
     Route: 048
  3. ATENOLOL [Concomitant]
  4. FOLIC ACID [Concomitant]
  5. FLUOXETINE [Concomitant]

REACTIONS (4)
  - LYMPHADENOPATHY [None]
  - NASOPHARYNGITIS [None]
  - PHARYNGITIS [None]
  - PYREXIA [None]
